FAERS Safety Report 4499593-8 (Version None)
Quarter: 2004Q4

REPORT INFORMATION
  Report Type: 
  Country: None (occurrence: None)
  Receive Date: 20041112
  Receipt Date: 20041103
  Transmission Date: 20050328
  Serious: Yes (Other)
  Sender: FDA-Public Use
  Company Number: US-JNJFOC-20041101262

PATIENT
  Sex: Female

DRUGS (9)
  1. REMICADE [Suspect]
     Route: 042
  2. ACIPHEX [Concomitant]
  3. VICODIN [Concomitant]
  4. VICODIN [Concomitant]
  5. TRAZODONE HCL [Concomitant]
  6. ACTONEL [Concomitant]
  7. OXYBUTININ [Concomitant]
  8. ATARAX [Concomitant]
  9. VITAMIN D [Concomitant]

REACTIONS (4)
  - DERMATITIS EXFOLIATIVE [None]
  - INFUSION RELATED REACTION [None]
  - RASH ERYTHEMATOUS [None]
  - RASH GENERALISED [None]
